FAERS Safety Report 18590375 (Version 1)
Quarter: 2020Q4

REPORT INFORMATION
  Report Type: Spontaneous
  Country: TR (occurrence: TR)
  Receive Date: 20201208
  Receipt Date: 20201208
  Transmission Date: 20210114
  Serious: Yes (Other)
  Sender: FDA-Public Use
  Company Number: TR-TEVA-2020-TR-1856029

PATIENT
  Sex: Male

DRUGS (4)
  1. RISPERIDONE. [Suspect]
     Active Substance: RISPERIDONE
     Indication: AUTISM SPECTRUM DISORDER
     Dosage: DAILY
     Route: 065
  2. RISPERIDONE. [Interacting]
     Active Substance: RISPERIDONE
     Indication: EPILEPSY
  3. VALPROIC ACID. [Interacting]
     Active Substance: VALPROIC ACID
     Indication: AUTISM SPECTRUM DISORDER
     Dosage: DAILY
     Route: 065
  4. VALPROIC ACID. [Interacting]
     Active Substance: VALPROIC ACID
     Indication: EPILEPSY

REACTIONS (6)
  - Pancytopenia [Recovering/Resolving]
  - Gingival hypertrophy [Recovering/Resolving]
  - Anaemia megaloblastic [Recovering/Resolving]
  - Dysplasia [Recovering/Resolving]
  - Megakaryocytes abnormal [Recovering/Resolving]
  - Drug interaction [Recovering/Resolving]
